FAERS Safety Report 5741144-1 (Version None)
Quarter: 2008Q2

REPORT INFORMATION
  Report Type: 
  Country: None (occurrence: None)
  Receive Date: 20080516
  Receipt Date: 20080407
  Transmission Date: 20081010
  Serious: Yes (Other)
  Sender: FDA-Public Use
  Company Number: US-PFIZER INC-2008040370

PATIENT
  Age: 51 Year
  Sex: Male
  Weight: 95 kg

DRUGS (10)
  1. XANAX [Suspect]
     Indication: ANXIETY
     Dosage: TEXT:0.25MG-FREQ:UNKNOWN
  2. PEG-INTRON [Suspect]
     Indication: HEPATITIS C
  3. RIBAVIRIN [Suspect]
     Indication: HEPATITIS C
  4. FLUOXETINE [Suspect]
     Indication: DEPRESSION
     Dosage: TEXT:20MG-FREQ:UNKNOWN
  5. ADVIL [Concomitant]
  6. VITAMIN CAP [Concomitant]
  7. VITAMIN B [Concomitant]
  8. ASCORBIC ACID [Concomitant]
  9. RESTORIL [Concomitant]
     Indication: INSOMNIA
  10. ANTIHYPERTENSIVES [Concomitant]
     Indication: HYPERTENSION

REACTIONS (3)
  - ALCOHOLISM [None]
  - DEPENDENCE [None]
  - SUICIDAL IDEATION [None]
